APPROVED DRUG PRODUCT: DEXTROSE 5% AND SODIUM CHLORIDE 0.45% IN PLASTIC CONTAINER
Active Ingredient: DEXTROSE; SODIUM CHLORIDE
Strength: 5GM/100ML;450MG/100ML
Dosage Form/Route: INJECTABLE;INJECTION
Application: N019484 | Product #001
Applicant: ABBOTT LABORATORIES PHARMACEUTICAL PRODUCTS DIV
Approved: Oct 4, 1985 | RLD: No | RS: No | Type: DISCN